FAERS Safety Report 8888732 (Version 2)
Quarter: 2012Q4

REPORT INFORMATION
  Report Type: 
  Country: US (occurrence: US)
  Receive Date: 20121106
  Receipt Date: 20121109
  Transmission Date: 20130627
  Serious: No
  Sender: FDA-Public Use
  Company Number: US-PFIZER INC-2012276800

PATIENT
  Age: 54 Year
  Sex: Female
  Weight: 74.83 kg

DRUGS (3)
  1. LYRICA [Suspect]
     Indication: NEUROPATHIC PAIN
     Dosage: 50 mg, 1x/day
     Route: 048
     Dates: start: 20120901
  2. LYRICA [Suspect]
     Indication: NEUROPATHY
  3. LYRICA [Suspect]
     Indication: LEG CRAMPS

REACTIONS (2)
  - Pain [Not Recovered/Not Resolved]
  - Drug ineffective [Unknown]
